FAERS Safety Report 16717061 (Version 1)
Quarter: 2019Q3

REPORT INFORMATION
  Report Type: Report from Study
  Country: JP (occurrence: JP)
  Receive Date: 20190819
  Receipt Date: 20190819
  Transmission Date: 20191005
  Serious: Yes (Hospitalization)
  Sender: FDA-Public Use
  Company Number: JP-ELI_LILLY_AND_COMPANY-JP201908002783

PATIENT
  Sex: Male

DRUGS (1)
  1. TERIPARATIDE [Suspect]
     Active Substance: TERIPARATIDE
     Indication: PRODUCT USED FOR UNKNOWN INDICATION
     Dosage: UNK
     Route: 058
     Dates: start: 201811

REACTIONS (4)
  - Back pain [Unknown]
  - Renal impairment [Unknown]
  - Hepatic function abnormal [Unknown]
  - Ascites [Unknown]

NARRATIVE: CASE EVENT DATE: 2019
